FAERS Safety Report 13887834 (Version 1)
Quarter: 2017Q3

REPORT INFORMATION
  Report Type: Spontaneous
  Country: US (occurrence: US)
  Receive Date: 20170821
  Receipt Date: 20170821
  Transmission Date: 20171127
  Serious: No
  Sender: FDA-Public Use
  Company Number: US-ARBOR PHARMACEUTICALS, LLC-US-2017ARB000668

PATIENT

DRUGS (1)
  1. OTOVEL [Suspect]
     Active Substance: CIPROFLOXACIN\FLUOCINOLONE ACETONIDE
     Indication: OTITIS EXTERNA
     Dosage: UNK BOTH EARS, BID
     Route: 001
     Dates: start: 20170710

REACTIONS (1)
  - Drug administration error [Unknown]

NARRATIVE: CASE EVENT DATE: 20170710
